FAERS Safety Report 10273672 (Version 1)
Quarter: 2014Q3

REPORT INFORMATION
  Report Type: Spontaneous
  Country: FR (occurrence: FR)
  Receive Date: 20140702
  Receipt Date: 20140702
  Transmission Date: 20150326
  Serious: Yes (Other)
  Sender: FDA-Public Use
  Company Number: FR-009507513-1406FRA012039

PATIENT
  Age: 55 Year
  Sex: Male

DRUGS (17)
  1. BACTRIM [Suspect]
     Active Substance: SULFAMETHOXAZOLE\TRIMETHOPRIM
     Dosage: 3 DF, TID
     Route: 042
     Dates: start: 20140416, end: 20140508
  2. VFEND [Suspect]
     Active Substance: VORICONAZOLE
     Dosage: 320 MG, BID
     Route: 042
     Dates: start: 20140424
  3. INEXIUM (ESOMEPRAZOLE MAGNESIUM) (ESOMEPRAZOLE MAGNESIUM) [Suspect]
     Active Substance: ESOMEPRAZOLE MAGNESIUM
     Dosage: 1 DF, QD
     Route: 042
     Dates: start: 20140419, end: 20140426
  4. LOVENOX [Suspect]
     Active Substance: ENOXAPARIN SODIUM
     Dosage: 4000 IU, QD
     Route: 058
     Dates: start: 20140417
  5. NOXAFIL [Suspect]
     Active Substance: POSACONAZOLE
     Dosage: 400 MG, BID
     Route: 042
     Dates: start: 20140424
  6. LASILIX [Suspect]
     Active Substance: FUROSEMIDE
     Dosage: 400 MG, QD
     Route: 042
     Dates: start: 20140427
  7. ROCEPHIN [Suspect]
     Active Substance: CEFTRIAXONE SODIUM
     Dosage: 2 G, QD
     Route: 042
     Dates: start: 20140416, end: 20140424
  8. ROVAMYCINE [Suspect]
     Active Substance: SPIRAMYCIN
     Dosage: 3 MILLION IU, TID
     Dates: start: 20140416, end: 20140419
  9. NOREPINEPHRINE [Suspect]
     Active Substance: NOREPINEPHRINE\NOREPINEPHRINE BITARTRATE
     Dosage: 0.2 MICROGRAM, QD
     Route: 042
     Dates: start: 20140416, end: 20140425
  10. SUFENTANIL [Suspect]
     Active Substance: SUFENTANIL
     Dosage: 240 MG, QD
     Route: 042
     Dates: start: 20140416, end: 20140425
  11. EUPANTOL [Suspect]
     Active Substance: PANTOPRAZOLE SODIUM
     Dosage: 1 DF, QD
     Route: 042
     Dates: start: 20140416, end: 20140424
  12. NOZINAN [Suspect]
     Active Substance: LEVOMEPROMAZINE
     Dosage: 40 MG, QD
     Route: 042
     Dates: start: 20140427, end: 20140505
  13. SOLU-MEDROL [Suspect]
     Active Substance: METHYLPREDNISOLONE SODIUM SUCCINATE
     Dosage: 200 MG, QD
     Route: 042
     Dates: start: 20140419, end: 20140524
  14. MIDAZOLAM [Suspect]
     Active Substance: MIDAZOLAM\MIDAZOLAM HYDROCHLORIDE
     Dosage: 0.12 G, QD
     Route: 042
     Dates: start: 20140416, end: 20140425
  15. CATAPRESSAN [Suspect]
     Active Substance: CLONIDINE
     Dosage: 200 MG, QD
     Route: 042
     Dates: start: 20140419, end: 20140430
  16. NIMBEX [Suspect]
     Active Substance: CISATRACURIUM BESYLATE
     Dosage: 360 MG, QD
     Route: 042
     Dates: start: 20140418, end: 20140425
  17. PROPOFOL. [Suspect]
     Active Substance: PROPOFOL
     Dosage: 480 MICROGRAM, QD
     Route: 042
     Dates: start: 20140420, end: 20140427

REACTIONS (1)
  - Deafness unilateral [Not Recovered/Not Resolved]

NARRATIVE: CASE EVENT DATE: 20140521
